FAERS Safety Report 7864093-1 (Version None)
Quarter: 2011Q4

REPORT INFORMATION
  Report Type: 
  Country: None (occurrence: None)
  Receive Date: 20111028
  Receipt Date: 20111018
  Transmission Date: 20120403
  Serious: Yes (Other)
  Sender: FDA-Public Use
  Company Number: GB-JNJFOC-20110709962

PATIENT
  Age: 75 Year
  Sex: Female
  Weight: 79 kg

DRUGS (9)
  1. ESOMEPRAZOLE SODIUM [Concomitant]
     Route: 048
  2. METHOTREXATE [Suspect]
     Route: 048
     Dates: start: 20100201
  3. IRBESARTAN [Concomitant]
     Route: 048
  4. RANITIDINE [Concomitant]
     Route: 048
  5. AMITRIPTYLINE HCL [Concomitant]
     Route: 048
  6. PRAVASTATIN [Concomitant]
     Route: 048
  7. REMICADE [Suspect]
     Indication: PSORIASIS
     Route: 042
     Dates: start: 20081204, end: 20110701
  8. REMICADE [Suspect]
     Route: 042
     Dates: start: 20110701, end: 20110701
  9. METHOTREXATE [Suspect]
     Indication: PSORIASIS
     Route: 048

REACTIONS (5)
  - BLOOD PRESSURE DECREASED [None]
  - NEUTROPENIA [None]
  - DISTURBANCE IN ATTENTION [None]
  - HEART RATE INCREASED [None]
  - INFUSION RELATED REACTION [None]
